FAERS Safety Report 8174530-3 (Version None)
Quarter: 2012Q1

REPORT INFORMATION
  Report Type: 
  Country: None (occurrence: None)
  Receive Date: 20120229
  Receipt Date: 20120224
  Transmission Date: 20120608
  Serious: Yes (Other)
  Sender: FDA-Public Use
  Company Number: US-PFIZER INC-2012049949

PATIENT
  Sex: Female
  Weight: 63.492 kg

DRUGS (2)
  1. XANAX XR [Suspect]
     Indication: ANXIETY
     Dosage: 1.5 MG
     Route: 048
     Dates: start: 20060101
  2. XANAX XR [Suspect]
     Dosage: UNK
     Route: 048
     Dates: end: 20120131

REACTIONS (4)
  - ALCOHOL ABUSE [None]
  - SOMNOLENCE [None]
  - DRUG ABUSE [None]
  - DRUG LEVEL INCREASED [None]
